FAERS Safety Report 24786351 (Version 3)
Quarter: 2025Q1

REPORT INFORMATION
  Report Type: Report from Study
  Country: CA (occurrence: CA)
  Receive Date: 20241230
  Receipt Date: 20250217
  Transmission Date: 20250408
  Serious: Yes (Other)
  Sender: TAKEDA
  Company Number: CA-TAKEDA-2024TUS128589

PATIENT
  Sex: Male

DRUGS (14)
  1. VEDOLIZUMAB [Suspect]
     Active Substance: VEDOLIZUMAB
     Indication: Crohn^s disease
  2. VEDOLIZUMAB [Suspect]
     Active Substance: VEDOLIZUMAB
  3. MESALAMINE [Concomitant]
     Active Substance: MESALAMINE
  4. MESALAMINE [Concomitant]
     Active Substance: MESALAMINE
  5. Salofalk [Concomitant]
  6. Salofalk [Concomitant]
  7. ATIVAN [Concomitant]
     Active Substance: LORAZEPAM
  8. VALACYCLOVIR [Concomitant]
     Active Substance: VALACYCLOVIR HYDROCHLORIDE
  9. DUTASTERIDE [Concomitant]
     Active Substance: DUTASTERIDE
  10. AMLODIPINE [Concomitant]
     Active Substance: AMLODIPINE BESYLATE
  11. RAMIPRIL [Concomitant]
     Active Substance: RAMIPRIL
  12. TAMSULOSIN [Concomitant]
     Active Substance: TAMSULOSIN
  13. CALCIUM [Concomitant]
     Active Substance: CALCIUM
  14. VITAMIN D [Concomitant]
     Active Substance: VITAMIN D NOS

REACTIONS (7)
  - Haematochezia [Unknown]
  - Anal pruritus [Unknown]
  - Diarrhoea [Unknown]
  - Frequent bowel movements [Recovered/Resolved]
  - Abdominal pain [Unknown]
  - Anal fissure [Recovered/Resolved]
  - Blood pressure increased [Unknown]
